FAERS Safety Report 8845972 (Version 4)
Quarter: 2012Q4

REPORT INFORMATION
  Report Type: 
  Country: US (occurrence: US)
  Receive Date: 20121017
  Receipt Date: 20121116
  Transmission Date: 20130627
  Serious: Yes (Other)
  Sender: FDA-Public Use
  Company Number: US-TEVA-364310USA

PATIENT
  Sex: Female

DRUGS (4)
  1. COPAXONE [Suspect]
     Indication: MULTIPLE SCLEROSIS
     Dates: start: 20090423
  2. AMPYRA [Suspect]
     Dosage: 20 Milligram Daily;
     Dates: start: 20120125
  3. BACLOFEN [Concomitant]
  4. GABAPENTIN [Concomitant]

REACTIONS (7)
  - Multiple sclerosis relapse [Recovered/Resolved]
  - Drug ineffective [Recovered/Resolved]
  - Migraine [Recovered/Resolved]
  - Fatigue [Recovered/Resolved]
  - Balance disorder [Recovered/Resolved]
  - Burning sensation [Recovered/Resolved]
  - Tremor [Recovered/Resolved]
